FAERS Safety Report 12552217 (Version 1)
Quarter: 2016Q3

REPORT INFORMATION
  Report Type: Spontaneous
  Country: US (occurrence: None)
  Receive Date: 20160712
  Receipt Date: 20160712
  Transmission Date: 20161109
  Serious: Yes (Other)
  Sender: FDA-Public Use
  Company Number: None

PATIENT
  Age: 60 Year
  Sex: Female
  Weight: 95.26 kg

DRUGS (8)
  1. SEREVENT DISKUS [Concomitant]
     Active Substance: SALMETEROL XINAFOATE
  2. CLARITIN [Concomitant]
     Active Substance: LORATADINE
  3. MECLIZINE [Concomitant]
     Active Substance: MECLIZINE HYDROCHLORIDE
  4. QVAR [Concomitant]
     Active Substance: BECLOMETHASONE DIPROPIONATE
  5. VITAMIN (ONE-A-DAY) [Concomitant]
  6. TOBRAMYCIN. [Concomitant]
     Active Substance: TOBRAMYCIN
  7. ASMANEX [Suspect]
     Active Substance: MOMETASONE FUROATE
     Indication: ASTHMA
     Route: 055
     Dates: start: 20160201, end: 20160501
  8. SUDAFED [Concomitant]
     Active Substance: PSEUDOEPHEDRINE HYDROCHLORIDE

REACTIONS (16)
  - Cough [None]
  - Weight increased [None]
  - Musculoskeletal stiffness [None]
  - Inner ear inflammation [None]
  - Skin exfoliation [None]
  - Rash [None]
  - Dry skin [None]
  - Dry mouth [None]
  - Vertigo [None]
  - Myalgia [None]
  - Insomnia [None]
  - Headache [None]
  - Eye infection [None]
  - Dry throat [None]
  - Tinnitus [None]
  - Vomiting [None]

NARRATIVE: CASE EVENT DATE: 20160620
